FAERS Safety Report 4585394-9 (Version None)
Quarter: 2005Q1

REPORT INFORMATION
  Report Type: 
  Country: None (occurrence: None)
  Receive Date: 20050214
  Receipt Date: 20050126
  Transmission Date: 20050727
  Serious: No
  Sender: FDA-Public Use
  Company Number: 10130

PATIENT
  Sex: Female

DRUGS (1)
  1. METHOTREXATE [Suspect]
     Indication: BENIGN HYDATIDIFORM MOLE
     Dosage: 50 MG WEEKLY/300 MG 2/WK UNK
     Route: 064

REACTIONS (7)
  - CONGENITAL ANOMALY [None]
  - DRUG EXPOSURE DURING PREGNANCY [None]
  - HYDROCEPHALUS [None]
  - HYPERTELORISM OF ORBIT [None]
  - MICROGNATHIA [None]
  - PREMATURE BABY [None]
  - SKULL MALFORMATION [None]
